FAERS Safety Report 24339893 (Version 1)
Quarter: 2024Q3

REPORT INFORMATION
  Report Type: Spontaneous
  Country: US (occurrence: US)
  Receive Date: 20240919
  Receipt Date: 20240919
  Transmission Date: 20241016
  Serious: No
  Sender: FERRING
  Company Number: US-FERRINGPH-2024FE02992

PATIENT
  Age: 89 Year
  Sex: Female

DRUGS (1)
  1. REBYOTA [Suspect]
     Active Substance: DONOR HUMAN STOOL
     Indication: Product used for unknown indication
     Dosage: UNK
     Route: 065
     Dates: start: 202405, end: 202405

REACTIONS (2)
  - Gastrointestinal pain [Not Recovered/Not Resolved]
  - Mucous stools [Not Recovered/Not Resolved]

NARRATIVE: CASE EVENT DATE: 20240101
